FAERS Safety Report 7734941-4 (Version None)
Quarter: 2011Q3

REPORT INFORMATION
  Report Type: 
  Country: None (occurrence: None)
  Receive Date: 20110907
  Receipt Date: 20110901
  Transmission Date: 20111222
  Serious: Yes (Other)
  Sender: FDA-Public Use
  Company Number: PHHY2011CA78091

PATIENT
  Sex: Female

DRUGS (6)
  1. SANDOSTATIN LAR [Suspect]
     Indication: DIARRHOEA
     Dosage: 20 MG, EVERY 4 WEEKS
     Route: 030
     Dates: start: 20110713, end: 20110713
  2. VICKS VAPOSTEAM LIQUID MEDICATION [Suspect]
     Dosage: UNK
  3. DECONGESTANTS [Suspect]
     Dosage: UNK UKN, UNK
  4. METRONIDAZOLE [Suspect]
     Dosage: UNK
  5. FUCIDINE CAP [Suspect]
     Dosage: UNK
  6. CORTISONE ACETATE [Suspect]
     Dosage: UNK

REACTIONS (10)
  - GASTROINTESTINAL PAIN [None]
  - ABDOMINAL PAIN [None]
  - INJECTION SITE PAIN [None]
  - ROSACEA [None]
  - DIARRHOEA [None]
  - PAIN [None]
  - SINUS CONGESTION [None]
  - RASH [None]
  - BLOOD MAGNESIUM DECREASED [None]
  - CONSTIPATION [None]
